FAERS Safety Report 10762522 (Version 1)
Quarter: 2015Q1

REPORT INFORMATION
  Report Type: Report from Study
  Country: AU (occurrence: AU)
  Receive Date: 20150204
  Receipt Date: 20150204
  Transmission Date: 20150721
  Serious: Yes (Hospitalization, Other)
  Sender: FDA-Public Use
  Company Number: PHHY2015AU011147

PATIENT

DRUGS (1)
  1. CLOZARIL [Suspect]
     Active Substance: CLOZAPINE
     Indication: PRODUCT USED FOR UNKNOWN INDICATION
     Dosage: 250 MG, QD (50MG MORNING AND 200 MG NIGHT)
     Route: 065

REACTIONS (3)
  - White blood cell count increased [Unknown]
  - Pulmonary oedema [Unknown]
  - Pyrexia [Unknown]
